FAERS Safety Report 9779916 (Version 1)
Quarter: 2013Q4

REPORT INFORMATION
  Report Type: Spontaneous
  Country: US (occurrence: US)
  Receive Date: 20131223
  Receipt Date: 20131223
  Transmission Date: 20140711
  Serious: Yes (Other)
  Sender: FDA-Public Use
  Company Number: US-PFIZER INC-2013365577

PATIENT
  Age: 64 Year
  Sex: Male
  Weight: 49.89 kg

DRUGS (13)
  1. CHANTIX [Suspect]
     Indication: SMOKING CESSATION THERAPY
     Dosage: 0.5 MG, 1X/DAY
  2. SERTRALINE [Concomitant]
     Indication: DEPRESSION
     Dosage: 100 MG, UNK
  3. OMEPRAZOLE [Concomitant]
     Indication: ULCER
     Dosage: 40 MG, UNK
  4. CYCLOBENZAPRINE [Concomitant]
     Indication: MUSCLE SPASMS
     Dosage: 10 MG, UNK
  5. KETOCONAZOLE [Concomitant]
     Indication: RASH
     Dosage: UNK
  6. KETOCONAZOLE [Concomitant]
     Indication: SKIN INFECTION
  7. LISINOPRIL [Concomitant]
     Indication: HYPERTENSION
     Dosage: 10 MG, UNK
  8. SIMVASTATIN [Concomitant]
     Indication: BLOOD CHOLESTEROL INCREASED
     Dosage: 20 MG, UNK
  9. SPIRIVA [Concomitant]
     Indication: CHRONIC OBSTRUCTIVE PULMONARY DISEASE
     Dosage: UNK
  10. TAMSULOSIN [Concomitant]
     Indication: PROSTATIC DISORDER
     Dosage: 0.4 MG, UNK
  11. RANITIDINE [Concomitant]
     Indication: HEPATITIS C
     Dosage: 150 MG, UNK
  12. CLONAZEPAM [Concomitant]
     Indication: ANXIETY
     Dosage: 5 MG, UNK
  13. MENTHOL/METHYL SALICYLATE [Concomitant]
     Indication: MUSCULOSKELETAL PAIN
     Dosage: UNK

REACTIONS (2)
  - Hernia [Unknown]
  - Cataract [Unknown]
